FAERS Safety Report 10584542 (Version 1)
Quarter: 2014Q4

REPORT INFORMATION
  Report Type: Spontaneous
  Country: IT (occurrence: None)
  Receive Date: 20141112
  Receipt Date: 20141112
  Transmission Date: 20150529
  Serious: Yes (Hospitalization)
  Sender: FDA-Public Use
  Company Number: 14X-083-1194416-00

PATIENT
  Age: 79 Year
  Sex: Female

DRUGS (10)
  1. KEPPRA [Suspect]
     Active Substance: LEVETIRACETAM
     Indication: POST-TRAUMATIC EPILEPSY
     Route: 048
  2. LANOXIN [Suspect]
     Active Substance: DIGOXIN
     Indication: ATRIAL FIBRILLATION
     Route: 042
     Dates: start: 20141001, end: 20141001
  3. BISOPROLOL HEMIFUMARATE [Suspect]
     Active Substance: BISOPROLOL FUMARATE
     Indication: ATRIAL FIBRILLATION
     Route: 048
  4. LANSOX [Suspect]
     Active Substance: LANSOPRAZOLE
     Indication: GASTRITIS
     Route: 048
  5. SEREUPIN [Suspect]
     Active Substance: PAROXETINE HYDROCHLORIDE
     Indication: ADJUSTMENT DISORDER WITH DEPRESSED MOOD
  6. LASIX [Suspect]
     Active Substance: FUROSEMIDE
     Indication: CARDIAC DISORDER
     Route: 048
  7. DIAMICRON [Suspect]
     Active Substance: GLICLAZIDE
     Indication: DIABETES MELLITUS
     Route: 048
  8. TRITTICO [Suspect]
     Active Substance: TRAZODONE HYDROCHLORIDE
     Indication: COGNITIVE DISORDER
     Route: 048
  9. LANOXIN [Suspect]
     Active Substance: DIGOXIN
     Indication: CARDIOMYOPATHY
     Route: 048
  10. TRIATEC [Suspect]
     Active Substance: RAMIPRIL
     Indication: HYPERTENSION
     Route: 048

REACTIONS (21)
  - Bradyphrenia [None]
  - Malnutrition [None]
  - Diabetic metabolic decompensation [None]
  - Drug interaction [None]
  - Spinal compression fracture [None]
  - Malaise [None]
  - Mitral valve incompetence [None]
  - Atrial fibrillation [None]
  - Fatigue [None]
  - Pulmonary hypertension [None]
  - Mitral valve calcification [None]
  - Aortic valve calcification [None]
  - Carotid arteriosclerosis [None]
  - Cognitive disorder [None]
  - Cardioactive drug level increased [None]
  - Tricuspid valve incompetence [None]
  - Medication error [None]
  - Fall [None]
  - Cerebral disorder [None]
  - Dilatation ventricular [None]
  - Dysphagia [None]

NARRATIVE: CASE EVENT DATE: 20141001
